FAERS Safety Report 11319223 (Version 1)
Quarter: 2015Q3

REPORT INFORMATION
  Report Type: Spontaneous
  Country: US (occurrence: US)
  Receive Date: 20150729
  Receipt Date: 20150729
  Transmission Date: 20151125
  Serious: No
  Sender: FDA-Public Use
  Company Number: US-ACTELION PHARMACEUTICALS US, INC.-A-US2015-119078

PATIENT
  Age: 66 Year
  Sex: Female

DRUGS (2)
  1. TENEX [Concomitant]
     Active Substance: GUANFACINE HYDROCHLORIDE
  2. OPSUMIT [Suspect]
     Active Substance: MACITENTAN
     Indication: PULMONARY HYPERTENSION
     Dosage: 10 MG, QD
     Route: 048
     Dates: start: 20150520

REACTIONS (11)
  - Urticaria [Unknown]
  - Nausea [Unknown]
  - Palpitations [Unknown]
  - Pain [Unknown]
  - Headache [Unknown]
  - Swelling [Unknown]
  - Photophobia [Unknown]
  - Pruritus [Unknown]
  - Decreased appetite [Unknown]
  - Nasal dryness [Unknown]
  - Rash [Unknown]
